FAERS Safety Report 7360751-6 (Version None)
Quarter: 2011Q1

REPORT INFORMATION
  Report Type: 
  Country: None (occurrence: None)
  Receive Date: 20110318
  Receipt Date: 20090515
  Transmission Date: 20110831
  Serious: Yes (Hospitalization, Other)
  Sender: FDA-Public Use
  Company Number: US-BAYER-200921543NA

PATIENT
  Sex: Male
  Weight: 2.5 kg

DRUGS (29)
  1. TRASYLOL [Suspect]
     Indication: TRUNCUS ARTERIOSUS PERSISTENT
     Dosage: 2 OR 3 CC
     Route: 042
     Dates: start: 20011231
  2. CLAFORAN [Concomitant]
     Dosage: UNK
     Route: 042
     Dates: start: 20011201
  3. ANCEF [Concomitant]
     Dosage: UNK
     Route: 042
     Dates: start: 20011231
  4. ANCEF [Concomitant]
     Dosage: 110 MG, UNK
     Route: 042
     Dates: start: 20011231
  5. PROTAMINE SULFATE [Concomitant]
     Dosage: 10 MG, UNK
     Route: 042
  6. FENTANYL [Concomitant]
     Dosage: UNK
     Route: 042
     Dates: start: 20011201
  7. VERSED [Concomitant]
     Dosage: 1 MG, UNK
     Route: 042
     Dates: start: 20011231
  8. GELFOAM [Concomitant]
     Dosage: UNK
     Route: 061
     Dates: start: 20011231, end: 20011231
  9. MILRINONE [Concomitant]
     Dosage: UNK
     Route: 042
     Dates: start: 20011231
  10. TRASYLOL [Suspect]
     Indication: VENTRICULAR SEPTAL DEFECT
     Dosage: UNK
     Dates: start: 20070705
  11. VITAMIN K TAB [Concomitant]
     Dosage: UNK
     Route: 030
     Dates: start: 20011201
  12. VANCOMYCIN HCL [Concomitant]
     Dosage: UNK
     Route: 042
     Dates: start: 20011201
  13. TPN [Concomitant]
     Dosage: UNK
     Route: 051
     Dates: start: 20011201
  14. DIGOXIN [Concomitant]
     Dosage: UNK
     Route: 042
     Dates: start: 20011201
  15. AMINOPHYLLINE [Concomitant]
     Dosage: 13.5 MG, UNK
     Route: 042
     Dates: start: 20011201
  16. RED BLOOD CELLS [Concomitant]
     Indication: PRODUCT USED FOR UNKNOWN INDICATION
     Dosage: 50 ML
     Dates: start: 20011221
  17. CEFOTAX [Concomitant]
     Dosage: UNK
     Route: 042
     Dates: start: 20011201
  18. LASIX [Concomitant]
     Dosage: UNK
     Route: 042
     Dates: start: 20011201
  19. CHLORAL HYDRATE [Concomitant]
     Dosage: UNK
     Route: 042
     Dates: start: 20011201
  20. PLATELETS [Concomitant]
     Indication: CARDIAC OPERATION
     Dosage: 50 ML
     Dates: start: 20011231
  21. PHENOBARBITAL [Concomitant]
     Indication: CONVULSION
  22. CEFTAZIDIME [Concomitant]
     Dosage: 110 MG, TID
     Route: 042
     Dates: start: 20011201
  23. ATROPINE [Concomitant]
     Dosage: 0.1 MG, UNK
     Route: 042
     Dates: start: 20011201
  24. SOLU-MEDROL [Concomitant]
     Dosage: UNK
     Dates: start: 20011231
  25. DOPAMINE [Concomitant]
     Dosage: UNK
     Route: 042
     Dates: start: 20011231
  26. AMPICILLIN [Concomitant]
     Dosage: UNK
     Route: 042
     Dates: start: 20011201
  27. VERSED [Concomitant]
     Dosage: 0.2 MG, UNK
     Route: 042
     Dates: start: 20011201
  28. HEPARIN SODIUM [Concomitant]
     Dosage: UNK
     Route: 042
     Dates: start: 20011231
  29. RED BLOOD CELLS [Concomitant]
     Indication: CARDIAC OPERATION
     Dosage: 20 ML
     Dates: start: 20011231

REACTIONS (11)
  - EMOTIONAL DISTRESS [None]
  - UNEVALUABLE EVENT [None]
  - PAIN [None]
  - STRESS [None]
  - ANXIETY [None]
  - MULTI-ORGAN FAILURE [None]
  - CONVULSION [None]
  - NERVOUS SYSTEM DISORDER [None]
  - CEREBROVASCULAR ACCIDENT [None]
  - FEAR [None]
  - RENAL IMPAIRMENT [None]
